FAERS Safety Report 8955374 (Version 1)
Quarter: 2012Q4

REPORT INFORMATION
  Report Type: 
  Country: DE (occurrence: DE)
  Receive Date: 20121207
  Receipt Date: 20121207
  Transmission Date: 20130627
  Serious: Yes (Other)
  Sender: FDA-Public Use
  Company Number: DE-MERCK-1212DEU002134

PATIENT

DRUGS (1)
  1. VELMETIA [Suspect]
     Route: 048

REACTIONS (3)
  - Hypersensitivity [Unknown]
  - Anaphylactic shock [Unknown]
  - Arthropod sting [Unknown]
